FAERS Safety Report 5157530-7 (Version None)
Quarter: 2006Q4

REPORT INFORMATION
  Report Type: 
  Country: None (occurrence: None)
  Receive Date: 20061127
  Receipt Date: 20061109
  Transmission Date: 20070319
  Serious: Yes (Disabling)
  Sender: FDA-Public Use
  Company Number: AT-GLAXOSMITHKLINE-B0446219A

PATIENT
  Age: 62 Year
  Sex: Female
  Weight: 60 kg

DRUGS (1)
  1. VALTREX [Suspect]
     Indication: HERPES ZOSTER
     Dosage: 500MG THREE TIMES PER DAY
     Route: 065
     Dates: start: 20061001, end: 20061002

REACTIONS (8)
  - DIZZINESS [None]
  - FEELING ABNORMAL [None]
  - HEPATIC ENZYME INCREASED [None]
  - HYPERHIDROSIS [None]
  - HYPERSENSITIVITY [None]
  - NAUSEA [None]
  - PARAESTHESIA [None]
  - VOMITING [None]
